FAERS Safety Report 5138872-8 (Version None)
Quarter: 2006Q4

REPORT INFORMATION
  Report Type: 
  Country: None (occurrence: None)
  Receive Date: 20061030
  Receipt Date: 20060508
  Transmission Date: 20070319
  Serious: No
  Sender: FDA-Public Use
  Company Number: US-GLAXOSMITHKLINE-A0604695A

PATIENT
  Age: 14 Year
  Sex: Female
  Weight: 81.8 kg

DRUGS (3)
  1. ADVAIR HFA [Suspect]
     Indication: ASTHMA
     Dosage: 1PUFF TWICE PER DAY
     Route: 055
     Dates: start: 20060501, end: 20060501
  2. SINGULAIR [Concomitant]
     Dosage: 10MG PER DAY
  3. ASTELIN [Concomitant]
     Dosage: 2SPR TWICE PER DAY
     Route: 045

REACTIONS (1)
  - BRONCHOSPASM [None]
